FAERS Safety Report 6107032-6 (Version None)
Quarter: 2009Q1

REPORT INFORMATION
  Report Type: 
  Country: None (occurrence: None)
  Receive Date: 20090309
  Receipt Date: 20090226
  Transmission Date: 20090719
  Serious: Yes (Hospitalization, Other)
  Sender: FDA-Public Use
  Company Number: US-BAYER-200914249NA

PATIENT
  Age: 42 Year
  Sex: Female
  Weight: 113 kg

DRUGS (1)
  1. MIRENA [Suspect]
     Indication: MENSTRUATION IRREGULAR
     Route: 015
     Dates: start: 20090201, end: 20090225

REACTIONS (2)
  - DYSPHEMIA [None]
  - MIGRAINE [None]
